FAERS Safety Report 6278323-3 (Version None)
Quarter: 2009Q3

REPORT INFORMATION
  Report Type: 
  Country: None (occurrence: None)
  Receive Date: 20090720
  Receipt Date: 20090720
  Transmission Date: 20100115
  Serious: Yes (Other)
  Sender: FDA-Public Use
  Company Number: None

PATIENT
  Age: 25 Year
  Sex: Female
  Weight: 86.1834 kg

DRUGS (2)
  1. COMPAZINE [Suspect]
     Indication: MIGRAINE
     Dosage: IV
     Route: 042
  2. COMPAZINE [Suspect]
     Indication: NAUSEA
     Dosage: IV
     Route: 042

REACTIONS (3)
  - FEELING ABNORMAL [None]
  - FORMICATION [None]
  - MOVEMENT DISORDER [None]
